FAERS Safety Report 7381157-X (Version None)
Quarter: 2011Q1

REPORT INFORMATION
  Report Type: 
  Country: None (occurrence: None)
  Receive Date: 20110329
  Receipt Date: 20110323
  Transmission Date: 20110831
  Serious: Yes (Other)
  Sender: FDA-Public Use
  Company Number: SI-JNJFOC-20110310587

PATIENT

DRUGS (1)
  1. CAELYX [Suspect]
     Indication: PRODUCT USED FOR UNKNOWN INDICATION
     Dosage: 2 MG/ML
     Route: 042

REACTIONS (6)
  - INFUSION RELATED REACTION [None]
  - BACK PAIN [None]
  - HYPERSENSITIVITY [None]
  - HYPERTENSION [None]
  - PYREXIA [None]
  - FLUSHING [None]
